FAERS Safety Report 5481905-X (Version None)
Quarter: 2007Q4

REPORT INFORMATION
  Report Type: 
  Country: None (occurrence: None)
  Receive Date: 20071005
  Receipt Date: 20070927
  Transmission Date: 20080405
  Serious: Yes (Other)
  Sender: FDA-Public Use
  Company Number: 2007BI011170

PATIENT
  Age: 51 Year
  Sex: Female

DRUGS (3)
  1. AVONEX [Suspect]
     Indication: MULTIPLE SCLEROSIS
     Dosage: 30 UG; QW; IM
     Route: 030
     Dates: start: 20050906
  2. NEURONTIN [Concomitant]
  3. NYQUIL [Concomitant]

REACTIONS (4)
  - BREAST CANCER [None]
  - BURNING SENSATION [None]
  - INFLUENZA LIKE ILLNESS [None]
  - RESTLESS LEGS SYNDROME [None]
